FAERS Safety Report 8414937-X (Version None)
Quarter: 2012Q2

REPORT INFORMATION
  Report Type: 
  Country: None (occurrence: None)
  Receive Date: 20120601
  Receipt Date: 20120601
  Transmission Date: 20120825
  Serious: Yes (Other)
  Sender: FDA-Public Use
  Company Number: None

PATIENT
  Sex: Male
  Weight: 79.3795 kg

DRUGS (1)
  1. PRADAXA [Suspect]
     Indication: ATRIAL FIBRILLATION
     Dosage: 150MG BID AM + PM 12 HRS APA PO
     Route: 048
     Dates: start: 20110501, end: 20120531

REACTIONS (3)
  - GASTROINTESTINAL HYPERMOTILITY [None]
  - GINGIVAL BLEEDING [None]
  - HAEMORRHOIDAL HAEMORRHAGE [None]
